FAERS Safety Report 16560756 (Version 1)
Quarter: 2019Q3

REPORT INFORMATION
  Report Type: Spontaneous
  Country: JP (occurrence: JP)
  Receive Date: 20190711
  Receipt Date: 20190711
  Transmission Date: 20191004
  Serious: Yes (Hospitalization, Other)
  Sender: FDA-Public Use
  Company Number: JP-009507513-1902JPN002601J

PATIENT
  Age: 69 Year
  Sex: Male
  Weight: 60 kg

DRUGS (6)
  1. BILANOA [Concomitant]
     Active Substance: BILASTINE
     Dosage: 20 MILLIGRAM, UNKNOWN
     Route: 048
  2. KEYTRUDA [Suspect]
     Active Substance: PEMBROLIZUMAB
     Indication: NON-SMALL CELL LUNG CANCER
     Dosage: 200 MILLIGRAM, Q3W
     Route: 041
     Dates: start: 20180416, end: 20190201
  3. PREDONINE [Concomitant]
     Active Substance: PREDNISOLONE
     Indication: INTERSTITIAL LUNG DISEASE
     Dosage: 1 MILLIGRAM, UNKNOWN
     Route: 048
  4. THYRADIN [Concomitant]
     Active Substance: LEVOTHYROXINE
     Dosage: 100 MICROGRAM, UNKNOWN
     Route: 048
  5. BENIDIPINE HYDROCHLORIDE [Concomitant]
     Active Substance: BENIDIPINE HYDROCHLORIDE
     Dosage: 4 MILLIGRAM, UNKNOWN
     Route: 048
  6. PARIET [Concomitant]
     Active Substance: RABEPRAZOLE SODIUM
     Dosage: 10 MILLIGRAM, UNKNOWN
     Route: 048

REACTIONS (6)
  - Renal failure [Recovering/Resolving]
  - Interstitial lung disease [Recovered/Resolved]
  - Nephritis [Recovering/Resolving]
  - Adrenal insufficiency [Recovering/Resolving]
  - Interstitial lung disease [Unknown]
  - Hypophysitis [Recovering/Resolving]

NARRATIVE: CASE EVENT DATE: 20181005
